FAERS Safety Report 7602916-1 (Version None)
Quarter: 2011Q3

REPORT INFORMATION
  Report Type: 
  Country: None (occurrence: None)
  Receive Date: 20110701
  Receipt Date: 20110623
  Transmission Date: 20111222
  Serious: Yes (Other)
  Sender: FDA-Public Use
  Company Number: 1000021474

PATIENT
  Age: 75 Year
  Sex: Female
  Weight: 43 kg

DRUGS (9)
  1. ACETYLCYSTEINE (ACETYLCYSTEINE) (ACETYLCYSTEINE) [Concomitant]
  2. ROFLUMILAST (ROFLUMILAST) (500 MICROGRAM, TABLETS) [Suspect]
     Indication: CONDITION AGGRAVATED
     Dosage: 500 MCG (500 MCG,1 IN 1 D),ORAL
     Route: 048
     Dates: start: 20110324, end: 20110418
  3. ROFLUMILAST (ROFLUMILAST) (500 MICROGRAM, TABLETS) [Suspect]
     Indication: CHRONIC OBSTRUCTIVE PULMONARY DISEASE
     Dosage: 500 MCG (500 MCG,1 IN 1 D),ORAL
     Route: 048
     Dates: start: 20110324, end: 20110418
  4. FLIXOTIDE (FLUTICASONE) (125 MICROGRAM) (FLUTICASONE) [Concomitant]
  5. NEBILET (NEBIVOLOL HYDROCHLORIDE) (NEBIVOLOL HYDROCHLORIDE) [Concomitant]
  6. FORADIL (FORMOTEROL) (FORMOTEROL) [Concomitant]
  7. OXAZEPAM (OXAZEPAM) (OXAZEPAM) [Concomitant]
  8. FUROSEMIDE [Concomitant]
  9. SPIRIVA (TIOTROPIUM BROMIDE) (TIOTROPIUM BROMIDE) [Concomitant]

REACTIONS (3)
  - ABDOMINAL PAIN [None]
  - WEIGHT DECREASED [None]
  - SLEEP DISORDER [None]
